FAERS Safety Report 21162708 (Version 3)
Quarter: 2022Q3

REPORT INFORMATION
  Report Type: Spontaneous
  Country: US (occurrence: US)
  Receive Date: 20220802
  Receipt Date: 20220823
  Transmission Date: 20221027
  Serious: No
  Sender: FDA-Public Use
  Company Number: US-PFIZER INC-202201021349

PATIENT
  Age: 65 Year
  Sex: Male
  Weight: 97.52 kg

DRUGS (4)
  1. PAXLOVID [Suspect]
     Active Substance: NIRMATRELVIR\RITONAVIR
     Indication: COVID-19 treatment
     Dosage: [PF-07321332 300 MG]/[RITONAVIR 100 MG]; 2X/DAY (IN THE MORNING AND AFTERNOON)
     Route: 048
     Dates: start: 20220728
  2. FLECAINIDE [Suspect]
     Active Substance: FLECAINIDE
     Indication: Atrial fibrillation
     Dosage: 50 MG, 2X/DAY
     Route: 048
  3. METOPROLOL [Concomitant]
     Active Substance: METOPROLOL
     Indication: Atrial fibrillation
     Dosage: 25 MG, 2X/DAY
     Route: 048
     Dates: start: 2013
  4. JANTOVEN [Concomitant]
     Active Substance: WARFARIN SODIUM
     Indication: Cerebrovascular accident
     Dosage: 2.5 MG, 1X/DAY
     Route: 048
     Dates: start: 2013

REACTIONS (2)
  - Off label use [Unknown]
  - Contraindicated product administered [Unknown]

NARRATIVE: CASE EVENT DATE: 20220728
